FAERS Safety Report 8397789-6 (Version None)
Quarter: 2012Q2

REPORT INFORMATION
  Report Type: 
  Country: None (occurrence: None)
  Receive Date: 20120531
  Receipt Date: 20120523
  Transmission Date: 20120825
  Serious: Yes (Other)
  Sender: FDA-Public Use
  Company Number: CN-JNJFOC-20120519671

PATIENT
  Age: 36 Year
  Sex: Female

DRUGS (2)
  1. MICONAZOLE NITRATE [Suspect]
     Route: 067
  2. MICONAZOLE NITRATE [Suspect]
     Indication: VAGINAL INFECTION
     Route: 067
     Dates: start: 20120517, end: 20120519

REACTIONS (2)
  - ABORTION THREATENED [None]
  - MATERNAL EXPOSURE DURING PREGNANCY [None]
